FAERS Safety Report 4358410-7 (Version None)
Quarter: 2004Q2

REPORT INFORMATION
  Report Type: 
  Country: None (occurrence: None)
  Receive Date: 20040514
  Receipt Date: 20031215
  Transmission Date: 20050107
  Serious: Yes (Hospitalization)
  Sender: FDA-Public Use
  Company Number: BE-ROCHE-353985

PATIENT
  Age: 56 Year
  Sex: Female
  Weight: 47 kg

DRUGS (9)
  1. PEG-INTERFERON ALFA 2A (RO 25-8310) [Suspect]
     Route: 058
     Dates: end: 20031111
  2. PEG-INTERFERON ALFA 2A (RO 25-8310) [Suspect]
     Route: 058
     Dates: start: 20031113
  3. RIBAVIRIN [Suspect]
     Route: 048
     Dates: start: 20031008, end: 20031111
  4. RIBAVIRIN [Suspect]
     Route: 048
     Dates: start: 20031112, end: 20031114
  5. RIBAVIRIN [Suspect]
     Route: 048
     Dates: start: 20031120, end: 20040406
  6. RIBAVIRIN [Suspect]
     Route: 048
     Dates: start: 20040416
  7. AMANTADINE HCL [Suspect]
     Route: 048
  8. LORAMET [Concomitant]
     Dates: start: 20031008
  9. CIPRAMIL [Concomitant]
     Dates: start: 20031008

REACTIONS (5)
  - ANAEMIA [None]
  - DISEASE RECURRENCE [None]
  - FALL [None]
  - HYPOTENSION [None]
  - VERTIGO [None]
